FAERS Safety Report 12321372 (Version 1)
Quarter: 2016Q2

REPORT INFORMATION
  Report Type: Spontaneous
  Country: US (occurrence: None)
  Receive Date: 20160429
  Receipt Date: 20160429
  Transmission Date: 20160815
  Serious: No
  Sender: FDA-Public Use
  Company Number: None

PATIENT
  Age: 21 Year
  Sex: Female
  Weight: 61.24 kg

DRUGS (3)
  1. AMPHETAMINE SALTS, 20 MG TABLET [Suspect]
     Active Substance: AMPHETAMINE ASPARTATE\AMPHETAMINE SULFATE\DEXTROAMPHETAMINE SACCHARATE\DEXTROAMPHETAMINE SULFATE
     Indication: ATTENTION DEFICIT/HYPERACTIVITY DISORDER
     Route: 048
     Dates: start: 20160420, end: 20160428
  2. ORTHO TRICYCLEN- LO [Concomitant]
  3. ADDERALL [Concomitant]
     Active Substance: AMPHETAMINE ASPARTATE\AMPHETAMINE SULFATE\DEXTROAMPHETAMINE SACCHARATE\DEXTROAMPHETAMINE SULFATE

REACTIONS (6)
  - Attention deficit/hyperactivity disorder [None]
  - Condition aggravated [None]
  - Mental disorder [None]
  - Fatigue [None]
  - Tremor [None]
  - Product substitution issue [None]

NARRATIVE: CASE EVENT DATE: 20160428
